FAERS Safety Report 8332375-5 (Version None)
Quarter: 2012Q1

REPORT INFORMATION
  Report Type: 
  Country: None (occurrence: None)
  Receive Date: 20120315
  Receipt Date: 20110609
  Transmission Date: 20120608
  Serious: No
  Sender: FDA-Public Use
  Company Number: PHHY2011US51663

PATIENT
  Sex: Female

DRUGS (1)
  1. GILENYA [Suspect]
     Indication: MULTIPLE SCLEROSIS
     Dosage: 0.5 MG, QD,ORAL
     Route: 048
     Dates: start: 20110505, end: 20110515

REACTIONS (3)
  - DYSPNOEA [None]
  - CHEST DISCOMFORT [None]
  - DIZZINESS [None]
